FAERS Safety Report 12810506 (Version 1)
Quarter: 2016Q4

REPORT INFORMATION
  Report Type: Other
  Country: None (occurrence: UA)
  Receive Date: 20161005
  Receipt Date: 20161005
  Transmission Date: 20170207
  Serious: Yes (Other)
  Sender: FDA-Public Use
  Company Number: UA-MERCK KGAA-1057990

PATIENT

DRUGS (1)
  1. NOVOTHYROX [Suspect]
     Active Substance: LEVOTHYROXINE SODIUM

REACTIONS (4)
  - Adrenal insufficiency [None]
  - Haemorrhagic stroke [None]
  - Diabetes mellitus [None]
  - Peripheral arterial occlusive disease [None]
